FAERS Safety Report 11892512 (Version 1)
Quarter: 2016Q1

REPORT INFORMATION
  Report Type: Spontaneous
  Country: US (occurrence: US)
  Receive Date: 20160106
  Receipt Date: 20160106
  Transmission Date: 20160526
  Serious: No
  Sender: FDA-Public Use
  Company Number: US-JNJFOC-20151218677

PATIENT
  Age: 74 Year
  Sex: Female

DRUGS (5)
  1. MOBIC [Concomitant]
     Active Substance: MELOXICAM
     Route: 065
  2. PLAQUENIL [Concomitant]
     Active Substance: HYDROXYCHLOROQUINE SULFATE
     Route: 065
  3. HYDROCODONE [Concomitant]
     Active Substance: HYDROCODONE
     Route: 065
  4. STELARA [Suspect]
     Active Substance: USTEKINUMAB
     Indication: PSORIASIS
     Route: 058
  5. SIMVASTATIN. [Concomitant]
     Active Substance: SIMVASTATIN
     Route: 065

REACTIONS (4)
  - Fungal infection [Unknown]
  - Sinusitis [Unknown]
  - Pain [Unknown]
  - Drug ineffective [Unknown]
